FAERS Safety Report 7562434-6 (Version None)
Quarter: 2011Q2

REPORT INFORMATION
  Report Type: 
  Country: None (occurrence: None)
  Receive Date: 20110622
  Receipt Date: 20110613
  Transmission Date: 20111010
  Serious: Yes (Other)
  Sender: FDA-Public Use
  Company Number: RU-ASTELLAS-2011EU003903

PATIENT
  Age: 48 Year
  Sex: Female

DRUGS (2)
  1. VESICARE [Suspect]
     Indication: HYPERTONIC BLADDER
     Dosage: UNK
     Route: 065
  2. VESICARE [Suspect]
     Indication: MICTURITION URGENCY

REACTIONS (3)
  - BLOOD PRESSURE [None]
  - PAIN [None]
  - TACHYCARDIA [None]
